FAERS Safety Report 22160201 (Version 1)
Quarter: 2023Q1

REPORT INFORMATION
  Report Type: Spontaneous
  Country: US (occurrence: US)
  Receive Date: 20230331
  Receipt Date: 20230331
  Transmission Date: 20230418
  Serious: No
  Sender: FDA-Public Use
  Company Number: US-Ipsen Biopharmaceuticals, Inc.-2023-07641

PATIENT
  Age: 51 Year
  Sex: Female

DRUGS (3)
  1. DYSPORT [Suspect]
     Active Substance: ABOBOTULINUMTOXINA
     Indication: Skin cosmetic procedure
     Dosage: 50 UNIT- 25 EACH SIDE CORRUGATOR MUSCLE
     Route: 030
     Dates: start: 20220606, end: 20220606
  2. DYSPORT [Suspect]
     Active Substance: ABOBOTULINUMTOXINA
     Dosage: BOTOX
     Route: 030
     Dates: start: 202111, end: 202111
  3. SYNTHROID [Concomitant]
     Active Substance: LEVOTHYROXINE SODIUM
     Indication: Hypothyroidism

REACTIONS (2)
  - Eyelid ptosis [Not Recovered/Not Resolved]
  - Therapeutic response shortened [Unknown]
